FAERS Safety Report 9308534 (Version 1)
Quarter: 2013Q2

REPORT INFORMATION
  Report Type: Spontaneous
  Country: NL (occurrence: NL)
  Receive Date: 20130524
  Receipt Date: 20130524
  Transmission Date: 20140414
  Serious: Yes (Hospitalization)
  Sender: FDA-Public Use
  Company Number: NL-PFIZER INC-2013155085

PATIENT
  Age: 73 Year
  Sex: Male
  Weight: 39 kg

DRUGS (1)
  1. SULFASALAZINE [Suspect]
     Indication: RHEUMATOID ARTHRITIS
     Dosage: INCREASED TO 2000MG
     Dates: start: 20130307, end: 20130505

REACTIONS (3)
  - Febrile neutropenia [Recovering/Resolving]
  - Lymphadenitis [Recovering/Resolving]
  - Pharyngitis [Recovering/Resolving]
